FAERS Safety Report 9386920 (Version 1)
Quarter: 2013Q3

REPORT INFORMATION
  Report Type: Spontaneous
  Country: US (occurrence: US)
  Receive Date: 20130708
  Receipt Date: 20130708
  Transmission Date: 20140515
  Serious: Yes (Death)
  Sender: FDA-Public Use
  Company Number: US-BAYER-2013-077885

PATIENT
  Age: 51 Year
  Sex: Male

DRUGS (8)
  1. CIPROFLOXACIN [Suspect]
     Indication: NECROTISING FASCIITIS
     Route: 042
  2. CIPROFLOXACIN [Suspect]
     Indication: SERRATIA INFECTION
  3. VANCOMYCIN [Concomitant]
     Indication: NECROTISING FASCIITIS
     Route: 042
  4. VANCOMYCIN [Concomitant]
     Indication: SERRATIA INFECTION
  5. CLINDAMYCIN [Concomitant]
     Indication: NECROTISING FASCIITIS
     Route: 042
  6. CLINDAMYCIN [Concomitant]
     Indication: SERRATIA INFECTION
  7. AZTREONAM [Concomitant]
     Indication: SERRATIA INFECTION
  8. AZTREONAM [Concomitant]
     Indication: NECROTISING FASCIITIS

REACTIONS (2)
  - Drug ineffective [Fatal]
  - Necrotising fasciitis [Fatal]
